FAERS Safety Report 8715305 (Version 3)
Quarter: 2013Q1

REPORT INFORMATION
  Report Type: Spontaneous
  Country: US (occurrence: US)
  Receive Date: 20120809
  Receipt Date: 20130227
  Transmission Date: 20140127
  Serious: Yes (Other)
  Sender: FDA-Public Use
  Company Number: US-ASTRAZENECA-2012SE54449

PATIENT
  Age: 52 Year
  Sex: Female

DRUGS (3)
  1. CRESTOR [Suspect]
     Indication: HYPERCHOLESTEROLAEMIA
     Route: 048
     Dates: end: 20130107
  2. PRILOSEC [Suspect]
     Route: 048
  3. PREVACID [Suspect]

REACTIONS (11)
  - Thyroid cancer [Unknown]
  - Dysphonia [Unknown]
  - Stress [Unknown]
  - Somnolence [Unknown]
  - Dysphonia [Unknown]
  - Pain [Unknown]
  - Gastrooesophageal reflux disease [Recovered/Resolved]
  - Constipation [Unknown]
  - Muscle spasms [Recovered/Resolved]
  - Blood cholesterol increased [Unknown]
  - Drug ineffective [Unknown]
